FAERS Safety Report 22914865 (Version 8)
Quarter: 2024Q1

REPORT INFORMATION
  Report Type: Spontaneous
  Country: US (occurrence: US)
  Receive Date: 20230907
  Receipt Date: 20240311
  Transmission Date: 20240409
  Serious: Yes (Hospitalization, Other)
  Sender: FDA-Public Use
  Company Number: US-BIOVITRUM-2023-US-014482

PATIENT
  Age: 44 Year
  Sex: Female

DRUGS (2)
  1. KINERET [Suspect]
     Active Substance: ANAKINRA
     Indication: Haemophagocytic lymphohistiocytosis
     Dosage: 100 MG DAILY
     Route: 058
     Dates: start: 20220731
  2. KINERET [Suspect]
     Active Substance: ANAKINRA
     Dosage: 100 MG DAILY
     Route: 058
     Dates: start: 20230730

REACTIONS (9)
  - Systemic lupus erythematosus [Unknown]
  - Haemophagocytic lymphohistiocytosis [Unknown]
  - Intentional product misuse [Not Recovered/Not Resolved]
  - Malaise [Unknown]
  - Product administration error [Unknown]
  - Product use issue [Unknown]
  - Condition aggravated [Unknown]
  - Dehydration [Unknown]
  - Infection [Unknown]

NARRATIVE: CASE EVENT DATE: 20220731
